FAERS Safety Report 24571987 (Version 1)
Quarter: 2024Q4

REPORT INFORMATION
  Report Type: Spontaneous
  Country: US (occurrence: US)
  Receive Date: 20241101
  Receipt Date: 20241101
  Transmission Date: 20250115
  Serious: No
  Sender: HALEON
  Company Number: US-HALEON-2204451

PATIENT
  Sex: Female

DRUGS (1)
  1. ALLI [Suspect]
     Active Substance: ORLISTAT
     Indication: Product used for unknown indication
     Dosage: EXPDATE:20260531

REACTIONS (3)
  - Poor quality product administered [Unknown]
  - Suspected counterfeit product [Unknown]
  - Product complaint [Unknown]
